FAERS Safety Report 8924507 (Version 2)
Quarter: 2012Q4

REPORT INFORMATION
  Report Type: Report from Study
  Country: NL (occurrence: NL)
  Receive Date: 20121126
  Receipt Date: 20121130
  Transmission Date: 20130627
  Serious: Yes (Hospitalization)
  Sender: FDA-Public Use
  Company Number: PHHO2012NL016048

PATIENT
  Age: 53 Year
  Sex: Male
  Weight: 67 kg

DRUGS (2)
  1. CGP 41251 [Suspect]
     Indication: SYSTEMIC MASTOCYTOSIS
     Dosage: 200 mg, QD
     Route: 048
     Dates: start: 20111207
  2. PREDNISOLONE SANDOZ [Suspect]
     Dosage: UNK

REACTIONS (1)
  - Post procedural haemorrhage [Recovered/Resolved]
